FAERS Safety Report 8891366 (Version 1)
Quarter: 2012Q4

REPORT INFORMATION
  Report Type: Spontaneous
  Country: US (occurrence: None)
  Receive Date: 20121105
  Receipt Date: 20121105
  Transmission Date: 20130627
  Serious: Yes (Death)
  Sender: FDA-Public Use
  Company Number: None

PATIENT
  Age: 41 Year
  Sex: Male
  Weight: 104.5 kg

DRUGS (2)
  1. OMONTYS [Suspect]
     Indication: CHRONIC RENAL FAILURE ANEMIA
     Dosage: 10MG IVP Q4WEEK with HD
     Dates: start: 20120901, end: 20120901
  2. HEPARIN [Concomitant]

REACTIONS (4)
  - Malaise [None]
  - Unresponsive to stimuli [None]
  - Blood pressure diastolic increased [None]
  - Resuscitation [None]
